FAERS Safety Report 6776715-7 (Version None)
Quarter: 2010Q2

REPORT INFORMATION
  Report Type: 
  Country: None (occurrence: None)
  Receive Date: 20100617
  Receipt Date: 20100617
  Transmission Date: 20101027
  Serious: Yes (Death, Hospitalization)
  Sender: FDA-Public Use
  Company Number: None

PATIENT
  Sex: Male
  Weight: 99.6 kg

DRUGS (3)
  1. CYCLOPHOSPHAMIDE [Suspect]
     Dosage: 1740
     Dates: end: 20100107
  2. FLUDARABINE PHOSPHATE [Suspect]
     Dosage: 174 MG
     Dates: end: 20100107
  3. RITUXIMAB (MOAB C2B8 ANTI CD20, CHIMERIC) [Suspect]
     Dosage: 871 MG
     Dates: end: 20100107

REACTIONS (8)
  - ARRHYTHMIA [None]
  - BLOOD CREATININE INCREASED [None]
  - BRADYCARDIA [None]
  - HYPOTENSION [None]
  - HYPOXIA [None]
  - LIVER FUNCTION TEST ABNORMAL [None]
  - MULTI-ORGAN FAILURE [None]
  - RESPIRATORY FAILURE [None]
